FAERS Safety Report 23516538 (Version 1)
Quarter: 2024Q1

REPORT INFORMATION
  Report Type: Spontaneous
  Country: NO (occurrence: NO)
  Receive Date: 20240213
  Receipt Date: 20240213
  Transmission Date: 20240409
  Serious: Yes (Hospitalization, Other)
  Sender: FDA-Public Use
  Company Number: None

PATIENT
  Age: 53 Year
  Sex: Female

DRUGS (3)
  1. CYCLOPHOSPHAMIDE [Suspect]
     Active Substance: CYCLOPHOSPHAMIDE
     Indication: Breast cancer
     Dosage: 600 MG/M2 ACCORDING TO THE EC90-PROTOCOL
     Route: 042
     Dates: start: 20240105, end: 20240105
  2. EPIRUBICIN HYDROCHLORIDE [Suspect]
     Active Substance: EPIRUBICIN HYDROCHLORIDE
     Indication: Breast cancer
     Dosage: 90 MG/M2 ACCORDING TO THE EC90-PROTOCOL, ROUTE: INTRAVENOUS USE, INTRAVESICAL USE
     Route: 050
     Dates: start: 20240105, end: 20240105
  3. ZIEXTENZO [Suspect]
     Active Substance: PEGFILGRASTIM-BMEZ
     Dosage: (DRUG NOT ADMINISTERED)
     Route: 065

REACTIONS (3)
  - Antibiotic therapy [Recovering/Resolving]
  - Product availability issue [Recovering/Resolving]
  - Febrile neutropenia [Recovering/Resolving]

NARRATIVE: CASE EVENT DATE: 20240120
